FAERS Safety Report 9648015 (Version 1)
Quarter: 2013Q4

REPORT INFORMATION
  Report Type: Spontaneous
  Country: US (occurrence: US)
  Receive Date: 20131028
  Receipt Date: 20131028
  Transmission Date: 20140711
  Serious: No
  Sender: FDA-Public Use
  Company Number: US-PFIZER INC-2013305807

PATIENT
  Age: 56 Year
  Sex: Male
  Weight: 104 kg

DRUGS (9)
  1. LYRICA [Suspect]
     Indication: NEUROPATHY PERIPHERAL
     Dosage: 100 MG, 2X/DAY
     Dates: start: 201309, end: 201310
  2. LYRICA [Suspect]
     Indication: HYPOAESTHESIA
  3. LYRICA [Suspect]
     Indication: PAIN IN EXTREMITY
  4. LYRICA [Suspect]
     Indication: PAIN IN EXTREMITY
  5. GABAPENTIN [Suspect]
     Indication: PAIN
     Dosage: 200 MG (100 MG X 2 CAPSULES), EVERY 8 HOURS
     Route: 048
  6. OXYCODONE HYDROCHLORIDE [Suspect]
     Indication: PAIN
     Dosage: 10 MG, 2X/DAY
  7. PREDNISONE [Suspect]
     Indication: PAIN
     Dosage: UNK
  8. HYDROCODONE [Suspect]
     Indication: PAIN
     Dosage: 10 MG, 4X/DAY
  9. METFORMIN [Concomitant]
     Dosage: UNK
     Dates: start: 2013

REACTIONS (3)
  - Drug intolerance [Unknown]
  - Pain [Unknown]
  - Drug ineffective [Unknown]
